FAERS Safety Report 22043718 (Version 2)
Quarter: 2023Q1

REPORT INFORMATION
  Report Type: Report from Study
  Country: US (occurrence: US)
  Receive Date: 20230228
  Receipt Date: 20230301
  Transmission Date: 20230418
  Serious: No
  Sender: FDA-Public Use
  Company Number: US-002147023-NVSC2023US044630

PATIENT
  Sex: Female

DRUGS (1)
  1. KESIMPTA [Suspect]
     Active Substance: OFATUMUMAB
     Indication: Product used for unknown indication
     Dosage: UNK
     Route: 065

REACTIONS (17)
  - Myalgia [Unknown]
  - Chills [Unknown]
  - Hyperhidrosis [Unknown]
  - Paraesthesia [Unknown]
  - Hypoaesthesia [Unknown]
  - Hot flush [Unknown]
  - Feeling abnormal [Unknown]
  - Palpitations [Unknown]
  - Skin burning sensation [Unknown]
  - Confusional state [Unknown]
  - Clumsiness [Unknown]
  - Erythema [Unknown]
  - Pyrexia [Unknown]
  - Headache [Unknown]
  - Heart rate increased [Unknown]
  - Injection site pain [Unknown]
  - Injection site swelling [Unknown]
